FAERS Safety Report 4939466-7 (Version None)
Quarter: 2006Q1

REPORT INFORMATION
  Report Type: 
  Country: None (occurrence: None)
  Receive Date: 20060306
  Receipt Date: 20060224
  Transmission Date: 20060701
  Serious: Yes (Life-Threatening, Hospitalization, Other)
  Sender: FDA-Public Use
  Company Number: HU200602004907

PATIENT
  Age: 46 Year
  Sex: Male

DRUGS (1)
  1. ZYPREXA [Suspect]
     Indication: BIPOLAR DISORDER
     Dosage: 20 MG, DAILY (1/D), ORAL
     Route: 048
     Dates: start: 20041019, end: 20060214

REACTIONS (10)
  - BACTERIAL SEPSIS [None]
  - DISSEMINATED INTRAVASCULAR COAGULATION [None]
  - GASTROINTESTINAL HAEMORRHAGE [None]
  - HEPATIC FAILURE [None]
  - INTERNATIONAL NORMALISED RATIO INCREASED [None]
  - PROTHROMBIN TIME SHORTENED [None]
  - RENAL FAILURE [None]
  - SHOCK [None]
  - THROMBIN TIME PROLONGED [None]
  - THROMBOCYTOPENIA [None]
